FAERS Safety Report 15794229 (Version 1)
Quarter: 2018Q4

REPORT INFORMATION
  Report Type: Spontaneous
  Country: US (occurrence: US)
  Receive Date: 20181213
  Receipt Date: 20181213
  Transmission Date: 20190205
  Serious: No
  Sender: FDA-Public Use
  Company Number: None

PATIENT
  Age: 40 Year
  Sex: Male
  Weight: 88.31 kg

DRUGS (1)
  1. INFLIXIMAB-DYYB [Suspect]
     Active Substance: INFLIXIMAB-DYYB
     Indication: COLITIS ULCERATIVE
     Dates: start: 20180405, end: 20180808

REACTIONS (9)
  - Rhinitis allergic [None]
  - Flushing [None]
  - Anxiety [None]
  - Dyspnoea [None]
  - Tachypnoea [None]
  - Nausea [None]
  - Chest discomfort [None]
  - Vomiting [None]
  - Eye swelling [None]

NARRATIVE: CASE EVENT DATE: 20180808
